FAERS Safety Report 14673167 (Version 1)
Quarter: 2018Q1

REPORT INFORMATION
  Report Type: Spontaneous
  Country: US (occurrence: US)
  Receive Date: 20180323
  Receipt Date: 20180323
  Transmission Date: 20180509
  Serious: Yes (Other)
  Sender: FDA-Public Use
  Company Number: US-TEVA-2018-US-872318

PATIENT
  Sex: Female

DRUGS (1)
  1. PREDNISONE. [Suspect]
     Active Substance: PREDNISONE
     Dosage: TOOK 2 20MG TABLETS
     Route: 065
     Dates: start: 20180309, end: 20180310

REACTIONS (6)
  - Swollen tongue [Unknown]
  - Paraesthesia [Unknown]
  - Swelling face [Unknown]
  - Erythema [Unknown]
  - Feeling hot [Unknown]
  - Hypersensitivity [Unknown]

NARRATIVE: CASE EVENT DATE: 20180309
